FAERS Safety Report 9866950 (Version 1)
Quarter: 2014Q1

REPORT INFORMATION
  Report Type: Spontaneous
  Country: US (occurrence: US)
  Receive Date: 20140204
  Receipt Date: 20140204
  Transmission Date: 20141002
  Serious: Yes (Other)
  Sender: FDA-Public Use
  Company Number: US-PFIZER INC-2014028341

PATIENT
  Age: 33 Year
  Sex: Female
  Weight: 68.48 kg

DRUGS (1)
  1. XELJANZ [Suspect]
     Indication: RHEUMATOID ARTHRITIS
     Dosage: 5 MG, 2X/DAY
     Route: 048
     Dates: start: 201310

REACTIONS (4)
  - Rheumatoid arthritis [Unknown]
  - Grip strength decreased [Unknown]
  - Pain [Unknown]
  - Local swelling [Unknown]
